FAERS Safety Report 6123741-7 (Version None)
Quarter: 2009Q1

REPORT INFORMATION
  Report Type: 
  Country: None (occurrence: None)
  Receive Date: 20090317
  Receipt Date: 20090312
  Transmission Date: 20090719
  Serious: Yes (Other)
  Sender: FDA-Public Use
  Company Number: SP02288

PATIENT
  Age: 46 Year
  Sex: Male

DRUGS (11)
  1. VISICOL [Suspect]
     Indication: COLONOSCOPY
     Dosage: (50 TABLETS), ORAL
     Route: 048
  2. VISICOL [Suspect]
     Indication: PREOPERATIVE CARE
     Dosage: (50 TABLETS), ORAL
     Route: 048
  3. AMITRIPTYLINE HCL [Suspect]
     Dosage: 75 MG
  4. IMIPRAMINE HYDROCHLORIDE [Suspect]
     Dosage: 75 MG
  5. PERPHENAZINE [Suspect]
     Dosage: 6 MG
  6. BROMAZEPAM [Suspect]
     Dosage: 6 MG
  7. TRAZODONE HCL [Suspect]
     Dosage: 75 MG
  8. MIANSERIN HYDROCHLORIDE [Suspect]
     Dosage: 30 MG
  9. FLUNITRAZEPAM [Suspect]
     Dosage: 2 MG
  10. CHLORPROMAZINE [Suspect]
     Dosage: 12.5 MG
  11. MAGNESIUM OXIDE [Concomitant]

REACTIONS (1)
  - LOSS OF CONSCIOUSNESS [None]
